FAERS Safety Report 15317533 (Version 5)
Quarter: 2022Q4

REPORT INFORMATION
  Report Type: Report from Study
  Country: BE (occurrence: BE)
  Receive Date: 20180824
  Receipt Date: 20221011
  Transmission Date: 20230112
  Serious: Yes (Death, Hospitalization, Other)
  Sender: FDA-Public Use
  Company Number: BE-BOEHRINGERINGELHEIM-2018-BI-033910

PATIENT
  Age: 63 Year
  Sex: Male
  Weight: 62.4 kg

DRUGS (11)
  1. GILOTRIF [Suspect]
     Active Substance: AFATINIB
     Indication: Squamous cell carcinoma of head and neck
     Route: 048
     Dates: start: 20180614, end: 20180703
  2. GILOTRIF [Suspect]
     Active Substance: AFATINIB
     Route: 048
     Dates: start: 20180716, end: 20180810
  3. NIVOLUMAB [Suspect]
     Active Substance: NIVOLUMAB
     Indication: Product used for unknown indication
     Route: 065
  4. ALIZAPRIDE HYDROCHLORIDE [Concomitant]
     Active Substance: ALIZAPRIDE HYDROCHLORIDE
     Indication: Nausea
     Dosage: DAILY DOSE: 50MG AS NEEDED (PRN)
     Route: 048
     Dates: start: 20171001, end: 20180628
  5. ALIZAPRIDE HYDROCHLORIDE [Concomitant]
     Active Substance: ALIZAPRIDE HYDROCHLORIDE
     Indication: Vomiting
  6. FRESUBIN ENTERAL FEEDING [Concomitant]
     Indication: Dysphagia
     Dosage: ENTERAL FEEDING 2KCAL
     Route: 065
     Dates: start: 201707, end: 20180702
  7. FRESUBIN ENTERAL FEEDING [Concomitant]
     Dosage: ENTERAL FEEDING GI CONTROL
     Route: 065
     Dates: start: 20180704, end: 20180710
  8. ISOSOURCE STANDARD [Concomitant]
     Indication: Dysphagia
     Route: 065
     Dates: end: 20180703
  9. ESOMEPRAZOLE [Concomitant]
     Active Substance: ESOMEPRAZOLE
     Indication: Nausea
     Route: 048
     Dates: start: 20180731
  10. MEDROL [Concomitant]
     Active Substance: METHYLPREDNISOLONE
     Indication: Inflammation
     Route: 042
     Dates: start: 20180731
  11. MIRTAZAPINE [Concomitant]
     Active Substance: MIRTAZAPINE
     Indication: Depression
     Route: 048
     Dates: start: 20180727

REACTIONS (6)
  - Death [Fatal]
  - Duodenitis [Not Recovered/Not Resolved]
  - Vomiting [Recovered/Resolved]
  - Diarrhoea [Recovered/Resolved]
  - Dehydration [Recovered/Resolved]
  - Pneumonia [Recovered/Resolved]

NARRATIVE: CASE EVENT DATE: 20180626
